FAERS Safety Report 11234809 (Version 1)
Quarter: 2015Q3

REPORT INFORMATION
  Report Type: Spontaneous
  Country: DK (occurrence: DK)
  Receive Date: 20150702
  Receipt Date: 20150702
  Transmission Date: 20151125
  Serious: Yes (Hospitalization, Other)
  Sender: FDA-Public Use
  Company Number: DK-GLAXOSMITHKLINE-DK2015093959

PATIENT
  Age: 48 Year
  Sex: Female

DRUGS (2)
  1. LAMICTAL [Suspect]
     Active Substance: LAMOTRIGINE
     Indication: EPILEPSY
     Dosage: 100 MG.
     Route: 048
     Dates: start: 20141118, end: 20150611
  2. SIMVASTATIN. [Concomitant]
     Active Substance: SIMVASTATIN

REACTIONS (9)
  - Dermatitis exfoliative [Unknown]
  - Anaemia [Unknown]
  - Mouth swelling [Unknown]
  - Mouth ulceration [Unknown]
  - Stevens-Johnson syndrome [Recovering/Resolving]
  - Malaise [Unknown]
  - Skin exfoliation [Unknown]
  - Eosinophilia [Unknown]
  - C-reactive protein increased [Unknown]

NARRATIVE: CASE EVENT DATE: 201506
